FAERS Safety Report 5339734-3 (Version None)
Quarter: 2007Q2

REPORT INFORMATION
  Report Type: 
  Country: None (occurrence: None)
  Receive Date: 20070531
  Receipt Date: 20070523
  Transmission Date: 20071010
  Serious: Yes (Other)
  Sender: FDA-Public Use
  Company Number: PHBS2007JP08708

PATIENT

DRUGS (3)
  1. LEVOFLOXACIN [Suspect]
  2. EUGLUCON [Concomitant]
  3. DIOVAN [Suspect]
     Dosage: 80 MG/DAY
     Route: 048

REACTIONS (2)
  - HYPOGLYCAEMIA [None]
  - LOSS OF CONSCIOUSNESS [None]
